FAERS Safety Report 21993417 (Version 1)
Quarter: 2023Q1

REPORT INFORMATION
  Report Type: Spontaneous
  Country: FR (occurrence: FR)
  Receive Date: 20230215
  Receipt Date: 20230215
  Transmission Date: 20230417
  Serious: Yes (Death)
  Sender: FDA-Public Use
  Company Number: None

PATIENT
  Age: 49 Year
  Sex: Female

DRUGS (4)
  1. LANSOPRAZOLE [Interacting]
     Active Substance: LANSOPRAZOLE
     Indication: Prophylaxis against gastrointestinal ulcer
     Dosage: 30 MILLIGRAM DAILY; 30MG*1X/D
     Dates: start: 20220208
  2. ESCITALOPRAM [Interacting]
     Active Substance: ESCITALOPRAM OXALATE
     Indication: Depression
     Dosage: 20 MILLIGRAM DAILY;  20MG*1X/D  , 1 FP
     Dates: start: 20220121, end: 20220220
  3. POSACONAZOLE [Interacting]
     Active Substance: POSACONAZOLE
     Indication: Systemic mycosis
     Dosage: 300 MILLIGRAM DAILY; 100MG*3X/D
     Dates: start: 20220215
  4. ATARAX [Interacting]
     Active Substance: HYDROXYZINE HYDROCHLORIDE
     Indication: Anxiety
     Dosage: 75 MILLIGRAM DAILY; 25MG*3X/D
     Dates: start: 20220124, end: 20220220

REACTIONS (2)
  - Death [Fatal]
  - Drug interaction [Unknown]

NARRATIVE: CASE EVENT DATE: 20220220
